FAERS Safety Report 16420541 (Version 1)
Quarter: 2019Q2

REPORT INFORMATION
  Report Type: Spontaneous
  Country: CA (occurrence: CA)
  Receive Date: 20190612
  Receipt Date: 20190612
  Transmission Date: 20190711
  Serious: Yes (Other)
  Sender: FDA-Public Use
  Company Number: CA-PFIZER INC-2019249157

PATIENT
  Age: 42 Year
  Sex: Female

DRUGS (1)
  1. VENLAFAXINE HCL [Suspect]
     Active Substance: VENLAFAXINE HYDROCHLORIDE
     Dosage: UNK, 1X/DAY
     Route: 048

REACTIONS (4)
  - Feeling hot [Recovered/Resolved]
  - Flushing [Recovered/Resolved]
  - Rash erythematous [Recovered/Resolved]
  - Photosensitivity reaction [Recovered/Resolved]
